FAERS Safety Report 9121209 (Version 3)
Quarter: 2013Q2

REPORT INFORMATION
  Report Type: Report from Study
  Country: US (occurrence: US)
  Receive Date: 20130225
  Receipt Date: 20130429
  Transmission Date: 20140414
  Serious: No
  Sender: FDA-Public Use
  Company Number: US-VERTEX PHARMACEUTICALS INC.-2013-002543

PATIENT
  Sex: Female

DRUGS (3)
  1. VX-950 (TELAPREVIR) [Suspect]
     Indication: HEPATITIS C
     Dosage: UNK
     Route: 048
     Dates: start: 20120724, end: 20121015
  2. RIBAVIRIN [Suspect]
     Indication: HEPATITIS C
     Dosage: UNK
     Dates: start: 20120724, end: 20130220
  3. PEGASYS [Suspect]
     Indication: HEPATITIS C
     Dosage: UNK
     Dates: start: 20120724, end: 20130220

REACTIONS (7)
  - Dizziness [Not Recovered/Not Resolved]
  - Headache [Unknown]
  - Dysphagia [Unknown]
  - Decreased appetite [Not Recovered/Not Resolved]
  - Flatulence [Unknown]
  - Skin exfoliation [Not Recovered/Not Resolved]
  - Drug ineffective [Not Recovered/Not Resolved]
